FAERS Safety Report 20930199 (Version 3)
Quarter: 2022Q4

REPORT INFORMATION
  Report Type: Report from Study
  Country: US (occurrence: US)
  Receive Date: 20220608
  Receipt Date: 20221115
  Transmission Date: 20230112
  Serious: Yes (Hospitalization, Other)
  Sender: FDA-Public Use
  Company Number: US-BIOVITRUM-2021US9864

PATIENT
  Sex: Female

DRUGS (3)
  1. KINERET [Suspect]
     Active Substance: ANAKINRA
     Indication: Rheumatoid arthritis
     Dates: start: 20210710
  2. KINERET [Suspect]
     Active Substance: ANAKINRA
     Dates: start: 20210712
  3. KINERET [Suspect]
     Active Substance: ANAKINRA

REACTIONS (7)
  - Lyme disease [Unknown]
  - Hypersensitivity [Unknown]
  - Peripheral swelling [Unknown]
  - Rash [Unknown]
  - Injection site pain [Unknown]
  - Product dose omission issue [Unknown]
  - Off label use [Unknown]
